FAERS Safety Report 6543284-6 (Version None)
Quarter: 2010Q1

REPORT INFORMATION
  Report Type: 
  Country: None (occurrence: None)
  Receive Date: 20100120
  Receipt Date: 20100112
  Transmission Date: 20100710
  Serious: Yes (Other)
  Sender: FDA-Public Use
  Company Number: FR-SANOFI-AVENTIS-2010SA001694

PATIENT
  Age: 21 Year
  Sex: Female

DRUGS (2)
  1. NASACORT [Suspect]
     Indication: DRUG USE FOR UNKNOWN INDICATION
     Dates: start: 20060101
  2. AERIUS [Suspect]
     Dates: start: 20060101

REACTIONS (1)
  - DELUSION [None]
